FAERS Safety Report 8414725-4 (Version None)
Quarter: 2012Q2

REPORT INFORMATION
  Report Type: 
  Country: None (occurrence: None)
  Receive Date: 20120605
  Receipt Date: 20120507
  Transmission Date: 20120825
  Serious: No
  Sender: FDA-Public Use
  Company Number: US-AMGEN-USASP2012028971

PATIENT
  Age: 60 Year
  Sex: Female
  Weight: 104.31 kg

DRUGS (6)
  1. METFORMIN HCL [Concomitant]
     Indication: TYPE 2 DIABETES MELLITUS
     Dosage: 1000 MG, 2X/DAY
  2. CLONAZEPAM [Concomitant]
     Indication: ANXIETY
     Dosage: 0.5 MG, DAILY
  3. SERTRALINE HYDROCHLORIDE [Concomitant]
     Indication: ANXIETY
     Dosage: 75 MG, DAILY
  4. ENBREL [Suspect]
     Indication: RHEUMATOID ARTHRITIS
     Dosage: 50 MG/ML, WEEKLY
     Dates: start: 20110601, end: 20120407
  5. PREDNISONE [Concomitant]
     Indication: RHEUMATOID ARTHRITIS
     Dosage: 12 MG, DAILY
  6. HYDROXYCHLOROQUINE SULFATE [Concomitant]
     Indication: RHEUMATOID ARTHRITIS
     Dosage: 200 MG, 2X/DAY

REACTIONS (3)
  - HERPES ZOSTER [None]
  - HEADACHE [None]
  - NEURALGIA [None]
